FAERS Safety Report 9350632 (Version 1)
Quarter: 2013Q2

REPORT INFORMATION
  Report Type: Spontaneous
  Country: CN (occurrence: CN)
  Receive Date: 20130617
  Receipt Date: 20130617
  Transmission Date: 20140414
  Serious: Yes (Other)
  Sender: FDA-Public Use
  Company Number: CN-JNJFOC-20130602734

PATIENT
  Age: 50 Year
  Sex: Male
  Weight: 91.5 kg

DRUGS (2)
  1. TYLENOL COLD [Suspect]
     Indication: PYREXIA
     Route: 048
     Dates: start: 20120815, end: 20120815
  2. ACETAMINOPHEN/DEXTROMETHORPHAN/PSEUDOEPHEDRINE [Suspect]
     Indication: PYREXIA
     Route: 048
     Dates: start: 20120814, end: 20120814

REACTIONS (8)
  - Liver injury [Recovering/Resolving]
  - Drug ineffective [Unknown]
  - Jaundice [None]
  - Alanine aminotransferase increased [None]
  - Aspartate aminotransferase increased [None]
  - Gamma-glutamyltransferase increased [None]
  - Blood bilirubin increased [None]
  - Bilirubin conjugated increased [None]
